FAERS Safety Report 11075367 (Version 1)
Quarter: 2015Q2

REPORT INFORMATION
  Report Type: Spontaneous
  Country: US (occurrence: US)
  Receive Date: 20150429
  Receipt Date: 20150429
  Transmission Date: 20150821
  Serious: Yes (Other)
  Sender: FDA-Public Use
  Company Number: US-ASTRAZENECA-2015SE39205

PATIENT
  Sex: Male

DRUGS (1)
  1. BYETTA [Suspect]
     Active Substance: EXENATIDE
     Route: 058

REACTIONS (7)
  - Peripheral artery stenosis [Unknown]
  - Injection site pain [Unknown]
  - Myocardial infarction [Unknown]
  - Cardiac disorder [Unknown]
  - Drug dose omission [Unknown]
  - Weight decreased [Unknown]
  - Intentional product misuse [Unknown]
